FAERS Safety Report 6336869-3 (Version None)
Quarter: 2009Q3

REPORT INFORMATION
  Report Type: 
  Country: None (occurrence: None)
  Receive Date: 20090901
  Receipt Date: 20090831
  Transmission Date: 20100115
  Serious: Yes (Death)
  Sender: FDA-Public Use
  Company Number: IT-WYE-G04344209

PATIENT
  Sex: Male
  Weight: 81 kg

DRUGS (4)
  1. TORISEL [Suspect]
     Route: 042
     Dates: start: 20090827, end: 20090827
  2. CHLORPHENIRAMINE MALEATE [Concomitant]
     Route: 042
     Dates: start: 20090827, end: 20090827
  3. DEXAMETHASONE [Concomitant]
     Route: 042
     Dates: start: 20090827, end: 20090827
  4. CLOFARABINE [Suspect]
     Route: 042
     Dates: start: 20090827, end: 20090827

REACTIONS (1)
  - CARDIAC ARREST [None]
